FAERS Safety Report 12459683 (Version 1)
Quarter: 2016Q2

REPORT INFORMATION
  Report Type: Spontaneous
  Country: CH (occurrence: CH)
  Receive Date: 20160613
  Receipt Date: 20160613
  Transmission Date: 20160815
  Serious: Yes (Other)
  Sender: FDA-Public Use
  Company Number: CH-009507513-1606CHE003041

PATIENT
  Age: 36 Year
  Sex: Female

DRUGS (7)
  1. LIDOCAINE. [Concomitant]
     Active Substance: LIDOCAINE
  2. CEFTRIAXONE. [Concomitant]
     Active Substance: CEFTRIAXONE
  3. SUGAMMADEX SODIUM [Concomitant]
     Active Substance: SUGAMMADEX SODIUM
     Dosage: 400 MG, UNK
     Route: 042
  4. FENTANYL. [Concomitant]
     Active Substance: FENTANYL
  5. PROPOFOL. [Concomitant]
     Active Substance: PROPOFOL
  6. ROCURONIUM BROMIDE. [Suspect]
     Active Substance: ROCURONIUM BROMIDE
     Indication: NEUROMUSCULAR BLOCKING THERAPY
     Dosage: REPEATED INJECTIONS
  7. SUXAMETHONIUM CHLORIDE FRESENIUS [Concomitant]

REACTIONS (3)
  - Urticaria [Recovering/Resolving]
  - Hypoxia [Recovering/Resolving]
  - Bronchospasm [Recovering/Resolving]
